FAERS Safety Report 4328395-8 (Version None)
Quarter: 2004Q1

REPORT INFORMATION
  Report Type: 
  Country: None (occurrence: None)
  Receive Date: 20040325
  Receipt Date: 20040211
  Transmission Date: 20041129
  Serious: No
  Sender: FDA-Public Use
  Company Number: USA-2004-0013045

PATIENT
  Sex: Male

DRUGS (1)
  1. SPECTRACEF [Suspect]
     Indication: ABSCESS
     Dosage: 200 MG, BID

REACTIONS (3)
  - ABSCESS [None]
  - CONDITION AGGRAVATED [None]
  - DRUG INEFFECTIVE [None]
